FAERS Safety Report 6477430-X (Version None)
Quarter: 2009Q4

REPORT INFORMATION
  Report Type: 
  Country: None (occurrence: None)
  Receive Date: 20091207
  Receipt Date: 20091030
  Transmission Date: 20100525
  Serious: Yes (Other)
  Sender: FDA-Public Use
  Company Number: US-SANOFI-AVENTIS-2009SA000290

PATIENT
  Age: 53 Year
  Sex: Male

DRUGS (3)
  1. LANTUS [Suspect]
     Dosage: DOSE:18 UNIT(S)
     Route: 058
  2. OPTICLICK [Suspect]
  3. HUMALOG [Suspect]

REACTIONS (1)
  - MYOCARDIAL INFARCTION [None]
